FAERS Safety Report 6535898-4 (Version None)
Quarter: 2010Q1

REPORT INFORMATION
  Report Type: 
  Country: None (occurrence: None)
  Receive Date: 20100106
  Receipt Date: 20091222
  Transmission Date: 20100710
  Serious: Yes (Other)
  Sender: FDA-Public Use
  Company Number: APP200900965

PATIENT

DRUGS (2)
  1. 4% XYLOCAINE-MPF (LIDOCAINE HYDROCHLORIDE) [Suspect]
     Indication: CATARACT OPERATION
     Dosage: INTRAOCULAR
     Dates: start: 20091217, end: 20091217
  2. XYLOCAINE [Suspect]

REACTIONS (1)
  - TOXIC ANTERIOR SEGMENT SYNDROME [None]
